FAERS Safety Report 18873796 (Version 6)
Quarter: 2022Q4

REPORT INFORMATION
  Report Type: Report from Study
  Country: US (occurrence: US)
  Receive Date: 20210210
  Receipt Date: 20221012
  Transmission Date: 20230113
  Serious: Yes (Hospitalization, Other)
  Sender: FDA-Public Use
  Company Number: US-BRISTOL-MYERS SQUIBB COMPANY-BMS-2021-010662

PATIENT
  Age: 59 Year
  Sex: Female
  Weight: 44.00 kg

DRUGS (27)
  1. NIVOLUMAB [Suspect]
     Active Substance: NIVOLUMAB
     Indication: Squamous cell carcinoma
     Dosage: 240 MILLIGRAM, Q2WK
     Route: 042
     Dates: start: 20200508
  2. NIVOLUMAB [Suspect]
     Active Substance: NIVOLUMAB
     Dosage: 480 MILLIGRAM, Q4WK
     Route: 042
     Dates: start: 20201218, end: 20210212
  3. SERINE/THREONINE-PROTEIN KINASE 19 [Suspect]
     Active Substance: SERINE/THREONINE-PROTEIN KINASE 19
     Indication: Squamous cell carcinoma
     Dosage: PFU/ML
     Route: 036
     Dates: start: 20200424, end: 20200424
  4. SERINE/THREONINE-PROTEIN KINASE 19 [Suspect]
     Active Substance: SERINE/THREONINE-PROTEIN KINASE 19
     Dosage: 10E6 TOTAL VOLUME 3ML
     Route: 036
     Dates: start: 20200804, end: 20200804
  5. SERINE/THREONINE-PROTEIN KINASE 19 [Suspect]
     Active Substance: SERINE/THREONINE-PROTEIN KINASE 19
     Dosage: 1 X 10E7 PFU/ML EVERY 2 WEEKS; TOTAL VOLUME 7 ML; INTRATUMORAL USE
     Route: 065
  6. OXYCODONE [Concomitant]
     Active Substance: OXYCODONE
     Indication: Tumour pain
     Dosage: AS REQUIRED
     Route: 048
     Dates: start: 20200419
  7. SODIUM HYPOCHLORITE [Concomitant]
     Active Substance: SODIUM HYPOCHLORITE
     Dosage: 0.0125 PERCENT, QD
     Route: 061
     Dates: start: 20200419
  8. SODIUM HYPOCHLORITE [Concomitant]
     Active Substance: SODIUM HYPOCHLORITE
     Indication: Wound
  9. SODIUM HYPOCHLORITE [Concomitant]
     Active Substance: SODIUM HYPOCHLORITE
     Indication: Neoplasm
  10. TRAMADOL [Concomitant]
     Active Substance: TRAMADOL
     Dosage: AS REQUIRED
     Route: 048
     Dates: start: 20200419
  11. TRAMADOL [Concomitant]
     Active Substance: TRAMADOL
     Indication: Chills
  12. CARBAMAZEPINE [Concomitant]
     Active Substance: CARBAMAZEPINE
  13. CARBAMAZEPINE [Concomitant]
     Active Substance: CARBAMAZEPINE
     Indication: Tumour pain
     Route: 048
  14. ATENOLOL [Concomitant]
     Active Substance: ATENOLOL
  15. ATENOLOL [Concomitant]
     Active Substance: ATENOLOL
     Indication: Hypertension
     Route: 048
     Dates: start: 1994, end: 20210131
  16. CYCLOBENZAPRINE [Concomitant]
     Active Substance: CYCLOBENZAPRINE
  17. CYCLOBENZAPRINE [Concomitant]
     Active Substance: CYCLOBENZAPRINE
     Indication: Muscle spasms
     Dosage: 5MG, AS NEEDED
     Route: 048
     Dates: start: 20201012, end: 20210205
  18. GABAPENTIN [Concomitant]
     Active Substance: GABAPENTIN
  19. GABAPENTIN [Concomitant]
     Active Substance: GABAPENTIN
     Indication: Back pain
     Dosage: 600 MILLIGRAM, TID
     Route: 048
     Dates: start: 2015
  20. FERROUS SULFATE [Concomitant]
     Active Substance: FERROUS SULFATE
     Indication: Anaemia
     Dosage: 325 MILLIGRAM, QD
     Route: 048
     Dates: start: 20201012
  21. LISINOPRIL [Concomitant]
     Active Substance: LISINOPRIL
     Indication: Hypertension
     Dosage: 40 MILLIGRAM, QD
     Route: 048
     Dates: start: 1994, end: 20210201
  22. ATORVASTATIN [Concomitant]
     Active Substance: ATORVASTATIN
     Indication: Hyperlipidaemia
     Route: 048
     Dates: start: 2000
  23. ENOXAPARIN [Concomitant]
     Active Substance: ENOXAPARIN
     Indication: Deep vein thrombosis
     Dosage: 40 MILLIGRAM, BID
     Route: 048
     Dates: start: 20200420
  24. HYDROCHLOROTHIAZIDE [Concomitant]
     Active Substance: HYDROCHLOROTHIAZIDE
     Indication: Hypertension
     Dosage: 12.5 MILLIGRAM, QD
     Route: 048
     Dates: start: 1994, end: 20210201
  25. HYDROCODONE BITARTRATE AND ACETAMINOPHEN [Concomitant]
     Active Substance: ACETAMINOPHEN\HYDROCODONE BITARTRATE
     Indication: Tumour pain
     Dosage: 5-325MG, AS REQUIRED
     Route: 048
     Dates: start: 20200316, end: 20200429
  26. INDOMETHACIN [Concomitant]
     Active Substance: INDOMETHACIN
     Indication: Pyrexia
     Dosage: 50MG, AS REQUIRED
     Route: 048
     Dates: start: 20200419
  27. SODIUM HYPOCHLORITE [Concomitant]
     Active Substance: SODIUM HYPOCHLORITE
     Indication: Wound
     Dosage: 1 APPLICATION, AS REQUIRED
     Route: 061
     Dates: start: 20200419

REACTIONS (4)
  - Diarrhoea [Recovered/Resolved]
  - Hypovolaemic shock [Recovered/Resolved]
  - Pleural effusion [Recovered/Resolved]
  - Failure to thrive [Recovered/Resolved]

NARRATIVE: CASE EVENT DATE: 20210115
